FAERS Safety Report 19916630 (Version 1)
Quarter: 2021Q4

REPORT INFORMATION
  Report Type: Spontaneous
  Country: US (occurrence: US)
  Receive Date: 20211004
  Receipt Date: 20211004
  Transmission Date: 20220304
  Serious: No
  Sender: FDA-Public Use
  Company Number: None

PATIENT
  Age: 50 Year
  Sex: Female
  Weight: 74.25 kg

DRUGS (7)
  1. TRINTELLIX [Suspect]
     Active Substance: VORTIOXETINE HYDROBROMIDE
     Indication: Major depression
     Dosage: ?          QUANTITY:1 TABLET(S);
     Route: 048
     Dates: start: 20211002, end: 20211004
  2. PROGESTERONE [Concomitant]
     Active Substance: PROGESTERONE
  3. BUPROPION [Concomitant]
     Active Substance: BUPROPION
  4. ADDERALL [Concomitant]
     Active Substance: AMPHETAMINE ASPARTATE\AMPHETAMINE SULFATE\DEXTROAMPHETAMINE SACCHARATE\DEXTROAMPHETAMINE SULFATE
  5. ESTRADIOL [Concomitant]
     Active Substance: ESTRADIOL
  6. ROPINIROLE [Concomitant]
     Active Substance: ROPINIROLE
  7. TRAZODONE [Concomitant]
     Active Substance: TRAZODONE HYDROCHLORIDE

REACTIONS (2)
  - Nausea [None]
  - Vomiting [None]

NARRATIVE: CASE EVENT DATE: 20211002
